FAERS Safety Report 8411129-5 (Version None)
Quarter: 2012Q2

REPORT INFORMATION
  Report Type: 
  Country: None (occurrence: None)
  Receive Date: 20120605
  Receipt Date: 20120503
  Transmission Date: 20120825
  Serious: No
  Sender: FDA-Public Use
  Company Number: US-AMGEN-USASP2012028040

PATIENT
  Age: 41 Year
  Sex: Male

DRUGS (1)
  1. ENBREL [Suspect]
     Indication: ANKYLOSING SPONDYLITIS
     Dosage: 50 MG, QWK
     Dates: start: 20110713

REACTIONS (6)
  - MIGRAINE [None]
  - DIZZINESS [None]
  - AUTOIMMUNE INNER EAR DISEASE [None]
  - VERTIGO [None]
  - PAIN [None]
  - NASOPHARYNGITIS [None]
